FAERS Safety Report 9126697 (Version 1)
Quarter: 2013Q1

REPORT INFORMATION
  Report Type: Spontaneous
  Country: US (occurrence: US)
  Receive Date: 20130228
  Receipt Date: 20130228
  Transmission Date: 20140127
  Serious: Yes (Other)
  Sender: FDA-Public Use
  Company Number: US-JNJFOC-20130214367

PATIENT
  Age: 23 Year
  Sex: Female
  Weight: 63.5 kg

DRUGS (4)
  1. BENADRYL CHILD ALLERGY LIQUID CHERRY [Suspect]
     Indication: SEASONAL ALLERGY
     Route: 048
  2. BENADRYL CHILD ALLERGY LIQUID CHERRY [Suspect]
     Indication: SEASONAL ALLERGY
     Route: 048
  3. BENADRYL CHILD ALLERGY LIQUID CHERRY [Suspect]
     Indication: SWELLING FACE
     Route: 048
  4. BENADRYL CHILD ALLERGY LIQUID CHERRY [Suspect]
     Indication: SWELLING FACE
     Route: 048

REACTIONS (2)
  - Hallucination [Recovered/Resolved]
  - Off label use [Unknown]
